FAERS Safety Report 5753746-7 (Version None)
Quarter: 2008Q2

REPORT INFORMATION
  Report Type: 
  Country: None (occurrence: None)
  Receive Date: 20080530
  Receipt Date: 20080526
  Transmission Date: 20081010
  Serious: Yes (Life-Threatening, Hospitalization)
  Sender: FDA-Public Use
  Company Number: FR-ASTRAZENECA-2008CG00785

PATIENT
  Age: 30913 Day
  Sex: Female

DRUGS (8)
  1. MOPRAL [Suspect]
     Indication: GASTRIC ULCER
     Route: 048
     Dates: start: 20080306, end: 20080311
  2. PYOSTACINE [Suspect]
     Indication: ERYSIPELAS
     Route: 048
     Dates: start: 20080307, end: 20080311
  3. OFLOCET [Suspect]
     Indication: URINARY TRACT INFECTION
     Route: 048
     Dates: start: 20080303, end: 20080309
  4. LOVENOX [Concomitant]
     Dates: start: 20080307
  5. TRIATEC [Concomitant]
  6. GLUCOPHAGE [Concomitant]
  7. DUPHALAC [Concomitant]
  8. CELIPROLOL [Concomitant]

REACTIONS (3)
  - HYPERTHERMIA [None]
  - TOXIC EPIDERMAL NECROLYSIS [None]
  - TOXIC SKIN ERUPTION [None]
